FAERS Safety Report 5879909-8 (Version None)
Quarter: 2008Q3

REPORT INFORMATION
  Report Type: 
  Country: None (occurrence: None)
  Receive Date: 20080912
  Receipt Date: 20080902
  Transmission Date: 20090109
  Serious: Yes (Other)
  Sender: FDA-Public Use
  Company Number: US-ELI_LILLY_AND_COMPANY-US200806005085

PATIENT
  Sex: Male

DRUGS (6)
  1. HUMALOG [Suspect]
     Dosage: UNK, AS NEEDED
     Dates: start: 20030101
  2. LANTUS [Concomitant]
     Dosage: 4 U, EACH EVENING
  3. ALTACE [Concomitant]
     Dosage: 10 MG, DAILY (1/D)
     Route: 048
  4. ASPIRIN [Concomitant]
     Dosage: 81 MG, DAILY (1/D)
     Route: 048
  5. LIPITOR [Concomitant]
     Dosage: 10 MG, EACH EVENING
     Route: 048
  6. PLAVIX [Concomitant]
     Dosage: 75 MG, DAILY (1/D)
     Route: 048

REACTIONS (4)
  - BLOOD GLUCOSE INCREASED [None]
  - CATARACT [None]
  - DRUG INEFFECTIVE [None]
  - RETINAL DETACHMENT [None]
